FAERS Safety Report 24380319 (Version 1)
Quarter: 2024Q3

REPORT INFORMATION
  Report Type: Spontaneous
  Country: FR (occurrence: FR)
  Receive Date: 20240930
  Receipt Date: 20240930
  Transmission Date: 20241017
  Serious: Yes (Death, Hospitalization, Other)
  Sender: SANOFI AVENTIS
  Company Number: None

PATIENT
  Age: 66 Year
  Sex: Male

DRUGS (2)
  1. LOVENOX [Suspect]
     Active Substance: ENOXAPARIN SODIUM
     Indication: Thrombosis prophylaxis
     Dosage: 12000 IU, QD
     Route: 058
     Dates: start: 20220607, end: 20220610
  2. LOVENOX [Suspect]
     Active Substance: ENOXAPARIN SODIUM
     Dosage: 12000 IU, QD
     Route: 058
     Dates: start: 20220610, end: 20220614

REACTIONS (1)
  - Heparin-induced thrombocytopenia [Fatal]

NARRATIVE: CASE EVENT DATE: 20220612
